FAERS Safety Report 8552571-1 (Version None)
Quarter: 2012Q3

REPORT INFORMATION
  Report Type: 
  Country: None (occurrence: None)
  Receive Date: 20120724
  Receipt Date: 20120724
  Transmission Date: 20120928
  Serious: Yes (Hospitalization)
  Sender: FDA-Public Use
  Company Number: None

PATIENT
  Age: 33 Year
  Sex: Female
  Weight: 52.6173 kg

DRUGS (1)
  1. PARAGARD INTRAUTERINE COPPER LISTED AS 99% ACCURACY [Suspect]
     Indication: CONTRACEPTION
     Dosage: 1 INTRA-UTERINE
     Route: 015
     Dates: start: 20100401, end: 20120716

REACTIONS (3)
  - HAEMORRHAGE [None]
  - MALAISE [None]
  - PREGNANCY WITH CONTRACEPTIVE DEVICE [None]
